FAERS Safety Report 8053930-6 (Version None)
Quarter: 2012Q1

REPORT INFORMATION
  Report Type: 
  Country: None (occurrence: None)
  Receive Date: 20120118
  Receipt Date: 20120116
  Transmission Date: 20120608
  Serious: Yes (Hospitalization, Other)
  Sender: FDA-Public Use
  Company Number: US-ELI_LILLY_AND_COMPANY-US201112006173

PATIENT
  Sex: Male
  Weight: 74.83 kg

DRUGS (13)
  1. ULTRAM [Concomitant]
     Dosage: UNK
  2. OXYBUTYNIN [Concomitant]
     Dosage: UNK
  3. HUMULIN N [Suspect]
     Indication: DIABETES MELLITUS
     Dosage: 60 U, QD
     Route: 058
     Dates: start: 20020101
  4. PRAVACHOL [Concomitant]
     Dosage: UNK
  5. PROTONIX [Concomitant]
     Dosage: UNK
  6. ALLOPURINOL [Concomitant]
     Dosage: UNK
  7. ENALAPRIL MALEATE [Concomitant]
     Dosage: UNK
  8. GEMFIBROZIL [Concomitant]
     Dosage: UNK
  9. COLACE [Concomitant]
     Dosage: UNK
  10. NEURONTIN [Concomitant]
     Dosage: UNK
  11. MULTI-VITAMIN [Concomitant]
     Dosage: UNK
  12. HUMULIN N [Suspect]
     Dosage: 60 U, QD
     Route: 058
     Dates: start: 20020101
  13. ASCORBIC ACID [Concomitant]
     Dosage: UNK

REACTIONS (4)
  - PANCREATITIS ACUTE [None]
  - RENAL FAILURE ACUTE [None]
  - ANAEMIA [None]
  - ULCER HAEMORRHAGE [None]
